FAERS Safety Report 4566645-3 (Version None)
Quarter: 2005Q1

REPORT INFORMATION
  Report Type: 
  Country: None (occurrence: None)
  Receive Date: 20050126
  Receipt Date: 20050114
  Transmission Date: 20050727
  Serious: Yes (Other)
  Sender: FDA-Public Use
  Company Number: 2005014940

PATIENT
  Sex: Female
  Weight: 99.7913 kg

DRUGS (5)
  1. NEURONTIN [Suspect]
     Indication: FIBROMYALGIA
     Dosage: 900 MG (300 MG, 3 IN 1 D), ORAL
     Route: 048
  2. VICODIN [Suspect]
     Indication: ILL-DEFINED DISORDER
     Dosage: (7.5), ORAL
     Route: 048
     Dates: start: 20040401
  3. LITHIUM CARBONATE [Concomitant]
  4. RISPERDAL [Concomitant]
  5. SERTRALINE HCL [Concomitant]

REACTIONS (11)
  - ABNORMAL BEHAVIOUR [None]
  - CHOLELITHIASIS [None]
  - DENTAL CARIES [None]
  - DRUG INEFFECTIVE [None]
  - FLATULENCE [None]
  - HEADACHE [None]
  - NAUSEA [None]
  - PAIN [None]
  - SKIN DEPIGMENTATION [None]
  - TREATMENT NONCOMPLIANCE [None]
  - WEIGHT DECREASED [None]
